FAERS Safety Report 24064623 (Version 1)
Quarter: 2024Q3

REPORT INFORMATION
  Report Type: Spontaneous
  Country: US (occurrence: None)
  Receive Date: 20240708
  Receipt Date: 20240708
  Transmission Date: 20241016
  Serious: Yes (Hospitalization)
  Sender: Public
  Company Number: None

PATIENT
  Sex: Female

DRUGS (1)
  1. BALVERSA [Suspect]
     Active Substance: ERDAFITINIB
     Indication: Iron deficiency anaemia
     Dosage: 4MG ONCE DAILY ORALLY
     Route: 048
     Dates: start: 202403

REACTIONS (3)
  - Fall [None]
  - Anaemia [None]
  - Urinary tract infection [None]
